FAERS Safety Report 9383696 (Version 1)
Quarter: 2013Q3

REPORT INFORMATION
  Report Type: Spontaneous
  Country: CN (occurrence: CN)
  Receive Date: 20130704
  Receipt Date: 20130704
  Transmission Date: 20140515
  Serious: Yes (Hospitalization)
  Sender: FDA-Public Use
  Company Number: CN-009507513-1307CHN001025

PATIENT
  Age: 63 Year
  Sex: Male
  Weight: 65 kg

DRUGS (1)
  1. TIENAM [Suspect]
     Indication: LUNG INFECTION
     Dosage: 0.5 G, BID
     Route: 041
     Dates: start: 20120113, end: 20120117

REACTIONS (1)
  - Supraventricular tachycardia [Recovered/Resolved]
